FAERS Safety Report 6078691-1 (Version None)
Quarter: 2009Q1

REPORT INFORMATION
  Report Type: 
  Country: None (occurrence: None)
  Receive Date: 20090216
  Receipt Date: 20090212
  Transmission Date: 20090719
  Serious: Yes (Other)
  Sender: FDA-Public Use
  Company Number: GB-SP-2008-03948

PATIENT
  Age: 69 Year
  Sex: Male

DRUGS (5)
  1. IMMUCYST [Suspect]
     Indication: CARCINOMA IN SITU OF BLADDER
     Route: 043
     Dates: start: 20080130, end: 20081126
  2. ZOVIRAX [Concomitant]
  3. AMLODIPINE [Concomitant]
  4. SIMVASTATIN [Concomitant]
  5. ASPIRIN [Concomitant]

REACTIONS (7)
  - ARTHRALGIA [None]
  - DYSURIA [None]
  - EYE INFECTION [None]
  - INFLUENZA LIKE ILLNESS [None]
  - MOBILITY DECREASED [None]
  - ORAL HERPES [None]
  - UVEITIS [None]
